FAERS Safety Report 6045516-X (Version None)
Quarter: 2009Q1

REPORT INFORMATION
  Report Type: 
  Country: None (occurrence: None)
  Receive Date: 20090121
  Receipt Date: 20090116
  Transmission Date: 20090719
  Serious: Yes (Other)
  Sender: FDA-Public Use
  Company Number: A0764228A

PATIENT
  Sex: Male

DRUGS (1)
  1. AVANDAMET [Suspect]
     Indication: TYPE 2 DIABETES MELLITUS
     Dosage: 4MG PER DAY
     Route: 048

REACTIONS (10)
  - ARRHYTHMIA [None]
  - BLOOD CHOLESTEROL ABNORMAL [None]
  - CARDIAC FAILURE [None]
  - CARDIAC HYPERTROPHY [None]
  - CHEST DISCOMFORT [None]
  - DYSPNOEA [None]
  - HYPERTENSION [None]
  - MYOCARDIAL INFARCTION [None]
  - OEDEMA [None]
  - PERIPHERAL VASCULAR DISORDER [None]
